FAERS Safety Report 24295682 (Version 1)
Quarter: 2024Q3

REPORT INFORMATION
  Report Type: Spontaneous
  Country: BR (occurrence: BR)
  Receive Date: 20240908
  Receipt Date: 20240908
  Transmission Date: 20241016
  Serious: Yes (Hospitalization)
  Sender: JOHNSON AND JOHNSON
  Company Number: BR-JNJFOC-20240882696

PATIENT
  Age: 43 Year
  Sex: Female

DRUGS (3)
  1. SPRAVATO [Suspect]
     Active Substance: ESKETAMINE
     Indication: Intentional self-injury
     Dosage: TREATMENT FOR THREE AND HALF A YEARS
  2. SPRAVATO [Suspect]
     Active Substance: ESKETAMINE
     Indication: Suicidal ideation
  3. SPRAVATO [Suspect]
     Active Substance: ESKETAMINE
     Indication: Depression

REACTIONS (3)
  - Hospitalisation [Unknown]
  - Condition aggravated [Unknown]
  - Drug ineffective [Unknown]

NARRATIVE: CASE EVENT DATE: 20240101
